FAERS Safety Report 7569325-5 (Version None)
Quarter: 2011Q2

REPORT INFORMATION
  Report Type: 
  Country: None (occurrence: None)
  Receive Date: 20110623
  Receipt Date: 20110620
  Transmission Date: 20111010
  Serious: Yes (Hospitalization)
  Sender: FDA-Public Use
  Company Number: JP-ABBOTT-11P-087-0710262-00

PATIENT
  Sex: Female
  Weight: 42 kg

DRUGS (5)
  1. TAMIFLU [Suspect]
     Indication: INFLUENZA
     Route: 048
     Dates: start: 20110124, end: 20110128
  2. CEFDINIR [Suspect]
     Indication: INFLUENZA
     Route: 048
     Dates: start: 20110124, end: 20110128
  3. LORFENAMIN [Suspect]
     Indication: INFLUENZA
     Route: 048
     Dates: start: 20110124, end: 20110128
  4. SAIKOKARYUKOTSUBOREITO [Suspect]
     Indication: MENOPAUSE
     Route: 048
     Dates: start: 20110114
  5. MEDICON [Concomitant]
     Indication: PRODUCT USED FOR UNKNOWN INDICATION
     Dates: start: 20110124, end: 20110128

REACTIONS (2)
  - DRUG INTERACTION [None]
  - HEPATIC FUNCTION ABNORMAL [None]
